FAERS Safety Report 8075656-5 (Version None)
Quarter: 2012Q1

REPORT INFORMATION
  Report Type: 
  Country: None (occurrence: None)
  Receive Date: 20120127
  Receipt Date: 20120122
  Transmission Date: 20120608
  Serious: No
  Sender: FDA-Public Use
  Company Number: US-B.I. PHARMACEUTICALS,INC./RIDGEFIELD-2012-BP-01419BP

PATIENT
  Age: 81 Year
  Sex: Female

DRUGS (4)
  1. AGGRENOX [Suspect]
     Indication: CEREBROVASCULAR ACCIDENT PROPHYLAXIS
     Route: 048
     Dates: start: 20120108, end: 20120121
  2. LISINOPRIL [Concomitant]
     Indication: HYPERTENSION
  3. ASPIRIN [Concomitant]
     Dates: end: 20120121
  4. AGGRENOX [Suspect]
     Route: 048
     Dates: start: 20120122

REACTIONS (3)
  - HEADACHE [None]
  - FEELING ABNORMAL [None]
  - ABDOMINAL PAIN UPPER [None]
